FAERS Safety Report 4285391-7 (Version None)
Quarter: 2004Q1

REPORT INFORMATION
  Report Type: 
  Country: None (occurrence: None)
  Receive Date: 20040202
  Receipt Date: 20040116
  Transmission Date: 20041129
  Serious: Yes (Hospitalization)
  Sender: FDA-Public Use
  Company Number: S03-FRA-05107-01

PATIENT
  Age: 83 Year
  Sex: Male

DRUGS (8)
  1. SEROPRAM (CITALOPRAM HYDROBROMIDE) [Suspect]
     Dosage: 20 MG QD PO
     Route: 048
     Dates: start: 20030101, end: 20031112
  2. MIXTARD HUMAN 70/30 [Concomitant]
  3. PRAVASTATIN SODIUM [Concomitant]
  4. FUROSEMIDE [Concomitant]
  5. BISOPROLOL FUMARATE [Concomitant]
  6. OMEPRAZOLE [Concomitant]
  7. RAMIPRIL [Concomitant]
  8. KARDEGIC (ACETYLSALICYLATE LYSINE) [Concomitant]

REACTIONS (10)
  - ATRIAL FIBRILLATION [None]
  - BUNDLE BRANCH BLOCK RIGHT [None]
  - CARDIAC FAILURE [None]
  - COUGH [None]
  - HAEMOPTYSIS [None]
  - HEART RATE INCREASED [None]
  - HYPERGLYCAEMIA [None]
  - HYPONATRAEMIA [None]
  - LUNG DISORDER [None]
  - RENAL FAILURE [None]
